FAERS Safety Report 5378329-2 (Version None)
Quarter: 2007Q2

REPORT INFORMATION
  Report Type: 
  Country: None (occurrence: None)
  Receive Date: 20070530
  Receipt Date: 20070223
  Transmission Date: 20071010
  Serious: No
  Sender: FDA-Public Use
  Company Number: 2007PV030656

PATIENT
  Age: 72 Year
  Sex: Male
  Weight: 67.586 kg

DRUGS (3)
  1. BYETTA [Suspect]
     Indication: DIABETES MELLITUS NON-INSULIN-DEPENDENT
     Dosage: 5 MCG; BID; SC; 5 MCG; BID; SC
     Route: 058
     Dates: start: 20061001, end: 20061220
  2. BYETTA [Suspect]
     Indication: DIABETES MELLITUS NON-INSULIN-DEPENDENT
     Dosage: 5 MCG; BID; SC; 5 MCG; BID; SC
     Route: 058
     Dates: start: 20070101, end: 20070101
  3. ACTOPLUS MET [Concomitant]

REACTIONS (5)
  - FATIGUE [None]
  - NAUSEA [None]
  - STOMACH DISCOMFORT [None]
  - WEIGHT DECREASED [None]
  - WEIGHT INCREASED [None]
